FAERS Safety Report 8474494-9 (Version None)
Quarter: 2012Q2

REPORT INFORMATION
  Report Type: 
  Country: None (occurrence: None)
  Receive Date: 20120628
  Receipt Date: 20120625
  Transmission Date: 20120825
  Serious: Yes (Other)
  Sender: FDA-Public Use
  Company Number: PHEH2012US012585

PATIENT
  Sex: Male
  Weight: 72.562 kg

DRUGS (1)
  1. DIOVAN [Suspect]
     Dosage: 1 DF, QD

REACTIONS (1)
  - DIABETES MELLITUS [None]
